FAERS Safety Report 9250240 (Version 2)
Quarter: 2014Q1

REPORT INFORMATION
  Report Type: Spontaneous
  Country: US (occurrence: US)
  Receive Date: 20130424
  Receipt Date: 20140121
  Transmission Date: 20141002
  Serious: No
  Sender: FDA-Public Use
  Company Number: US-ASTRAZENECA-2013SE27351

PATIENT
  Sex: Male
  Weight: 68 kg

DRUGS (15)
  1. NEXIUM [Suspect]
     Indication: GASTROOESOPHAGEAL REFLUX DISEASE
     Route: 048
  2. NEXIUM [Suspect]
     Indication: GASTROOESOPHAGEAL REFLUX DISEASE
     Route: 048
     Dates: start: 200708, end: 201206
  3. NEXIUM [Suspect]
     Indication: GASTROOESOPHAGEAL REFLUX DISEASE
     Route: 048
     Dates: start: 20070804
  4. OMEPRAZOLE [Suspect]
     Indication: GASTROOESOPHAGEAL REFLUX DISEASE
     Route: 048
  5. OMEPRAZOLE [Suspect]
     Indication: GASTROOESOPHAGEAL REFLUX DISEASE
     Route: 048
     Dates: start: 20100826
  6. ZANTAC/ RANITIDINE [Concomitant]
  7. ZANTAC/ RANITIDINE [Concomitant]
     Dates: start: 20101204
  8. PREDNISONE [Concomitant]
     Dates: start: 20070813
  9. HYDROCODONE/APAP [Concomitant]
     Dosage: 7.5/500 MG
     Dates: start: 20070402
  10. SULFAMETHOXAZOLE-TMP [Concomitant]
     Dates: start: 20080714
  11. ALPRAZOLAM [Concomitant]
     Dates: start: 20080911
  12. TRAMADOL HCL [Concomitant]
     Dates: start: 20090613
  13. CYCLOBENZAPRINE [Concomitant]
     Dates: start: 20080502
  14. TRAZODONE [Concomitant]
     Dates: start: 20091104
  15. GEODON [Concomitant]
     Indication: SLEEP DISORDER

REACTIONS (7)
  - Osteoporosis [Unknown]
  - Bone disorder [Unknown]
  - Multiple fractures [Unknown]
  - Foot fracture [Unknown]
  - Osteoarthritis [Unknown]
  - Arthritis [Unknown]
  - Limb injury [Unknown]
